FAERS Safety Report 5625780-9 (Version None)
Quarter: 2008Q1

REPORT INFORMATION
  Report Type: 
  Country: None (occurrence: None)
  Receive Date: 20080213
  Receipt Date: 20080213
  Transmission Date: 20080703
  Serious: Yes (Other)
  Sender: FDA-Public Use
  Company Number: None

PATIENT
  Sex: Male
  Weight: 74.3899 kg

DRUGS (6)
  1. GEODON [Suspect]
     Indication: PSYCHOTIC DISORDER
     Dosage: 60MG BID P.O.
     Route: 048
     Dates: start: 20080115, end: 20080116
  2. EFFEXOR [Concomitant]
  3. SEROQUEL [Concomitant]
  4. BENTYL [Concomitant]
  5. COGENTIN [Concomitant]
  6. BENADRYL [Concomitant]

REACTIONS (6)
  - EXTRAPYRAMIDAL DISORDER [None]
  - FEELING ABNORMAL [None]
  - MUSCULOSKELETAL STIFFNESS [None]
  - SKIN DISCOLOURATION [None]
  - SWOLLEN TONGUE [None]
  - TONGUE DISORDER [None]
